FAERS Safety Report 4792361-9 (Version None)
Quarter: 2005Q4

REPORT INFORMATION
  Report Type: 
  Country: None (occurrence: None)
  Receive Date: 20051010
  Receipt Date: 20050929
  Transmission Date: 20060501
  Serious: Yes (Hospitalization)
  Sender: FDA-Public Use
  Company Number: DE-BOEHRINGER INGELHEIM PHARMACEUTICALS, INC.-2005-BP-17784YA

PATIENT
  Sex: Male

DRUGS (1)
  1. OMNIC CAPSULES [Suspect]
     Indication: BENIGN PROSTATIC HYPERPLASIA
     Route: 048
     Dates: start: 20050406

REACTIONS (3)
  - BLOOD PRESSURE [None]
  - BLOOD PRESSURE ABNORMAL [None]
  - DRUG INEFFECTIVE [None]
